FAERS Safety Report 9352486 (Version 2)
Quarter: 2013Q4

REPORT INFORMATION
  Report Type: Spontaneous
  Country: US (occurrence: US)
  Receive Date: 20130617
  Receipt Date: 20131127
  Transmission Date: 20140711
  Serious: Yes (Hospitalization)
  Sender: FDA-Public Use
  Company Number: US-B.I. PHARMACEUTICALS,INC./RIDGEFIELD-2013-BI-16748BP

PATIENT
  Age: 82 Year
  Sex: Male
  Weight: 95.25 kg

DRUGS (18)
  1. PRADAXA [Suspect]
     Indication: ATRIAL FIBRILLATION
     Dosage: 300 MG
     Route: 048
     Dates: start: 20110218, end: 20110314
  2. AMIODARONE HCL [Concomitant]
     Route: 048
     Dates: start: 2010, end: 2011
  3. ASPIRIN EC [Concomitant]
     Dosage: 81 MG
     Route: 048
  4. DOXAZOSIN MESYLATE [Concomitant]
     Dosage: 2 MG
     Route: 048
     Dates: start: 2000
  5. FLONASE [Concomitant]
  6. KLOR-CON [Concomitant]
     Dosage: 20 MG
     Route: 048
  7. LOVASTATIN [Concomitant]
     Dosage: 20 MG
     Route: 048
     Dates: start: 2008
  8. METOPROLOL TARTRATE [Concomitant]
     Dosage: 50 MG
     Route: 048
     Dates: start: 2009
  9. OMEPRAZOLE [Concomitant]
     Dosage: 20 MG
     Route: 048
  10. TORSEMIDE [Concomitant]
     Dosage: 20 MG
     Route: 048
     Dates: start: 2009
  11. PANTOPRAZOLE SODIUM [Concomitant]
     Dosage: 200 MG
     Route: 048
  12. ULTRAM [Concomitant]
     Dosage: 50 MG
     Route: 048
     Dates: start: 2009
  13. MULTAQ [Concomitant]
     Indication: ATRIAL FIBRILLATION
     Dosage: 800 MG
     Route: 048
  14. CO Q10 [Concomitant]
     Dosage: 30 MG
     Route: 048
  15. JUICE PLUS FIBER [Concomitant]
     Route: 048
  16. POTASSIUM [Concomitant]
     Dosage: 40 MEQ
     Dates: start: 2009
  17. NITROGLYCERIN [Concomitant]
     Indication: CHEST PAIN
     Route: 060
  18. SPIRIVA [Concomitant]
     Dosage: 18 MCG
     Route: 055

REACTIONS (3)
  - Rectal haemorrhage [Recovered/Resolved]
  - Coagulopathy [Unknown]
  - Epistaxis [Unknown]
